FAERS Safety Report 21330940 (Version 1)
Quarter: 2022Q3

REPORT INFORMATION
  Report Type: Spontaneous
  Country: US (occurrence: US)
  Receive Date: 20220914
  Receipt Date: 20220914
  Transmission Date: 20221026
  Serious: No
  Sender: FDA-Public Use
  Company Number: US-SANOFI-01272396

PATIENT
  Age: 84 Year
  Sex: Female

DRUGS (2)
  1. LANTUS SOLOSTAR [Suspect]
     Active Substance: INSULIN GLARGINE
     Indication: Type 2 diabetes mellitus
     Dosage: 38 IU, BID
  2. HUMALOG [Concomitant]
     Active Substance: INSULIN LISPRO
     Dosage: TID BEFORE MEALS

REACTIONS (1)
  - Inappropriate schedule of product administration [Unknown]
